FAERS Safety Report 23804266 (Version 2)
Quarter: 2024Q2

REPORT INFORMATION
  Report Type: Spontaneous
  Country: US (occurrence: None)
  Receive Date: 20240501
  Receipt Date: 20240508
  Transmission Date: 20240716
  Serious: Yes (Hospitalization, Other)
  Sender: FDA-Public Use
  Company Number: US-ROCHE-3553048

PATIENT
  Sex: Male
  Weight: 108.96 kg

DRUGS (1)
  1. HEMLIBRA [Suspect]
     Active Substance: EMICIZUMAB-KXWH
     Indication: Factor VIII deficiency
     Dosage: YES
     Route: 065
     Dates: start: 2018

REACTIONS (3)
  - Loss of consciousness [Not Recovered/Not Resolved]
  - Accident [Unknown]
  - Seizure [Unknown]
